FAERS Safety Report 18072249 (Version 2)
Quarter: 2020Q3

REPORT INFORMATION
  Report Type: Spontaneous
  Country: DE (occurrence: DE)
  Receive Date: 20200727
  Receipt Date: 20200730
  Transmission Date: 20201103
  Serious: Yes (Death)
  Sender: FDA-Public Use
  Company Number: DE-PFIZER INC-2020282681

PATIENT
  Age: 56 Year
  Sex: Male

DRUGS (6)
  1. CLINDAMYCIN PALMITATE HCL [Suspect]
     Active Substance: CLINDAMYCIN PALMITATE HYDROCHLORIDE
     Indication: ACTINOMYCOSIS
     Dosage: UNK (FOR 6 WEEKS)
     Dates: start: 1985
  2. DIGITALIS [Concomitant]
     Active Substance: DIGITALIS
     Dosage: UNK
  3. ERYTHROMYCIN. [Suspect]
     Active Substance: ERYTHROMYCIN
     Indication: ACTINOMYCOSIS
     Dosage: UNK (FOR 6 WEEKS)
     Dates: start: 1985
  4. TETRACYCLINE [Suspect]
     Active Substance: TETRACYCLINE
     Indication: ACTINOMYCOSIS
     Dosage: UNK
     Dates: start: 1987
  5. CLINDAMYCIN PALMITATE HCL [Suspect]
     Active Substance: CLINDAMYCIN PALMITATE HYDROCHLORIDE
     Indication: FUSOBACTERIUM INFECTION
  6. ERYTHROMYCIN. [Suspect]
     Active Substance: ERYTHROMYCIN
     Indication: FUSOBACTERIUM INFECTION

REACTIONS (1)
  - Drug ineffective [Fatal]

NARRATIVE: CASE EVENT DATE: 1987
